FAERS Safety Report 17133251 (Version 11)
Quarter: 2023Q2

REPORT INFORMATION
  Report Type: Spontaneous
  Country: FR (occurrence: FR)
  Receive Date: 20191210
  Receipt Date: 20230504
  Transmission Date: 20230722
  Serious: Yes (Hospitalization, Other)
  Sender: FDA-Public Use
  Company Number: FR-MYLANLABS-2019M1114956

PATIENT
  Age: 72 Year
  Sex: Male

DRUGS (6)
  1. IBUPROFEN [Interacting]
     Active Substance: IBUPROFEN
     Indication: Product used for unknown indication
     Dosage: UNK
     Route: 065
  2. METFORMIN HYDROCHLORIDE [Interacting]
     Active Substance: METFORMIN HYDROCHLORIDE
     Indication: Type 2 diabetes mellitus
     Dosage: 1000 MILLIGRAM, TWO TIMES A DAY(MORNING AND IN THE EVENING)
     Route: 065
  3. DOLUTEGRAVIR SODIUM\RILPIVIRINE HYDROCHLORIDE [Interacting]
     Active Substance: DOLUTEGRAVIR SODIUM\RILPIVIRINE HYDROCHLORIDE
     Indication: HIV infection
     Dosage: 1 DOSAGE FORM, ONCE A DAY,(50MG/25MG )
     Route: 065
  4. RILPIVIRINE [Suspect]
     Active Substance: RILPIVIRINE
     Indication: HIV infection
     Dosage: 25 MILLIGRAM, ONCE A DAY
     Route: 065
  5. DOLUTEGRAVIR [Interacting]
     Active Substance: DOLUTEGRAVIR
     Indication: HIV infection
     Dosage: 50 MILLIGRAM, ONCE A DAY
     Route: 065
  6. DOLUTEGRAVIR [Interacting]
     Active Substance: DOLUTEGRAVIR
     Indication: Acquired immunodeficiency syndrome
     Dosage: 50G/25MG, DAILY
     Route: 065

REACTIONS (8)
  - Lactic acidosis [Unknown]
  - Glomerular filtration rate decreased [Unknown]
  - Drug interaction [Unknown]
  - Vomiting [Unknown]
  - Abdominal pain [Unknown]
  - Acute kidney injury [Unknown]
  - Acidosis [Unknown]
  - Dehydration [Unknown]
